FAERS Safety Report 21596207 (Version 2)
Quarter: 2025Q3

REPORT INFORMATION
  Report Type: Report from Study
  Country: EU (occurrence: EU)
  Receive Date: 20221115
  Receipt Date: 20250722
  Transmission Date: 20251021
  Serious: Yes (Other)
  Sender: AUROBINDO
  Company Number: EU-AUROBINDO-AUR-APL-2022-048014

PATIENT
  Age: 53 Year
  Sex: Male

DRUGS (19)
  1. PACLITAXEL [Suspect]
     Active Substance: PACLITAXEL
     Indication: Epstein-Barr virus infection
     Route: 065
  2. PACLITAXEL [Suspect]
     Active Substance: PACLITAXEL
     Indication: Gastric cancer
  3. DOCETAXEL [Suspect]
     Active Substance: DOCETAXEL
     Indication: Epstein-Barr virus infection
     Route: 065
  4. DOCETAXEL [Suspect]
     Active Substance: DOCETAXEL
     Indication: Gastric cancer
  5. IRINOTECAN [Suspect]
     Active Substance: IRINOTECAN
     Indication: Epstein-Barr virus infection
     Route: 065
  6. IRINOTECAN [Suspect]
     Active Substance: IRINOTECAN
     Indication: Gastric cancer
  7. FLUOROURACIL [Suspect]
     Active Substance: FLUOROURACIL
     Indication: Epstein-Barr virus infection
     Route: 065
  8. FLUOROURACIL [Suspect]
     Active Substance: FLUOROURACIL
     Indication: Gastric cancer
  9. LEUCOVORIN [Suspect]
     Active Substance: LEUCOVORIN\LEUCOVORIN CALCIUM
     Indication: Epstein-Barr virus infection
     Route: 065
  10. LEUCOVORIN [Suspect]
     Active Substance: LEUCOVORIN\LEUCOVORIN CALCIUM
     Indication: Gastric cancer
  11. LONSURF [Suspect]
     Active Substance: TIPIRACIL HYDROCHLORIDE\TRIFLURIDINE
     Indication: Epstein-Barr virus infection
     Route: 065
  12. LONSURF [Suspect]
     Active Substance: TIPIRACIL HYDROCHLORIDE\TRIFLURIDINE
     Indication: Gastric cancer
  13. OXALIPLATIN [Suspect]
     Active Substance: OXALIPLATIN
     Indication: Epstein-Barr virus infection
     Route: 065
  14. OXALIPLATIN [Suspect]
     Active Substance: OXALIPLATIN
     Indication: Gastric cancer
  15. RAMUCIRUMAB [Suspect]
     Active Substance: RAMUCIRUMAB
     Indication: Epstein-Barr virus infection
     Route: 065
  16. RAMUCIRUMAB [Suspect]
     Active Substance: RAMUCIRUMAB
     Indication: Gastric cancer
  17. GIMERACIL\OTERACIL\TEGAFUR [Suspect]
     Active Substance: GIMERACIL\OTERACIL POTASSIUM\TEGAFUR
     Indication: Epstein-Barr virus infection
     Route: 048
  18. GIMERACIL\OTERACIL\TEGAFUR [Suspect]
     Active Substance: GIMERACIL\OTERACIL POTASSIUM\TEGAFUR
     Indication: Gastric cancer
  19. PEMBROLIZUMAB [Concomitant]
     Active Substance: PEMBROLIZUMAB
     Indication: Product used for unknown indication
     Route: 065
     Dates: start: 202101

REACTIONS (2)
  - Polyneuropathy [Unknown]
  - Drug ineffective [Unknown]
